FAERS Safety Report 4830104-0 (Version None)
Quarter: 2005Q4

REPORT INFORMATION
  Report Type: 
  Country: None (occurrence: None)
  Receive Date: 20051117
  Receipt Date: 20050819
  Transmission Date: 20060501
  Serious: Yes (Death)
  Sender: FDA-Public Use
  Company Number: 2005AP04475

PATIENT
  Age: 16670 Day
  Sex: Female
  Weight: 130 kg

DRUGS (8)
  1. SEROQUEL [Suspect]
     Indication: SCHIZOPHRENIA
     Route: 048
  2. SEROQUEL [Suspect]
     Route: 048
  3. EFFEXOR [Concomitant]
  4. EFFEXOR [Concomitant]
  5. OXAZEPAM [Concomitant]
  6. EPILIM [Concomitant]
  7. AVAPRO [Concomitant]
  8. ACETAMINOPHEN W/ CODEINE [Concomitant]
     Dosage: 2 DF TAKEN EVERY 4 HOURS

REACTIONS (2)
  - DEATH [None]
  - OVERDOSE [None]
